FAERS Safety Report 14779350 (Version 1)
Quarter: 2018Q2

REPORT INFORMATION
  Report Type: Spontaneous
  Country: US (occurrence: US)
  Receive Date: 20180412
  Receipt Date: 20180412
  Transmission Date: 20180711
  Serious: Yes (Other)
  Sender: FDA-Public Use
  Company Number: None

PATIENT
  Age: 61 Year
  Sex: Female

DRUGS (2)
  1. ENBREL [Suspect]
     Active Substance: ETANERCEPT
     Indication: RHEUMATOID ARTHRITIS
     Dosage: ONE PEN SQ WEEKLY
     Route: 058
  2. ENBREL [Suspect]
     Active Substance: ETANERCEPT
     Indication: MYOCARDITIS
     Dosage: ONE PEN SQ WEEKLY
     Route: 058

REACTIONS (4)
  - Drug ineffective [None]
  - Skin infection [None]
  - Haemorrhage [None]
  - Skin ulcer [None]

NARRATIVE: CASE EVENT DATE: 20180406
